FAERS Safety Report 11055139 (Version 1)
Quarter: 2015Q2

REPORT INFORMATION
  Report Type: Spontaneous
  Country: US (occurrence: US)
  Receive Date: 20150422
  Receipt Date: 20150422
  Transmission Date: 20150821
  Serious: No
  Sender: FDA-Public Use
  Company Number: US-SA-2014SA158324

PATIENT
  Sex: Female

DRUGS (20)
  1. VITAMIN D [Concomitant]
     Active Substance: CHOLECALCIFEROL
     Dosage: DOSE:1000 UNIT(S)
     Route: 048
     Dates: start: 20141020
  2. ENOXAPARIN SODIUM. [Suspect]
     Active Substance: ENOXAPARIN SODIUM
  3. RESTORIL [Concomitant]
     Active Substance: TEMAZEPAM
     Indication: SLEEP DISORDER
     Dosage: STRENGTH:30 MG; 30 MG BY MOUTH NIGHTLY AS NEEDED
     Route: 048
     Dates: start: 20141020
  4. GEODON [Concomitant]
     Active Substance: ZIPRASIDONE HYDROCHLORIDE\ZIPRASIDONE MESYLATE
     Dosage: STRENGTH: 20 MG, BY MOUTH WITH MEALS
     Route: 048
     Dates: start: 20141020
  5. LOVENOX [Concomitant]
     Active Substance: ENOXAPARIN SODIUM
     Dosage: STRENGTH:100MG/ML, INJECTED ONE SYRINGE INTO THE SKIN DAILY
     Dates: start: 20141020
  6. CIPRO [Concomitant]
     Active Substance: CIPROFLOXACIN HYDROCHLORIDE
  7. PANTHENOL/RETINOL/THIAMINE HYDROCHLORIDE/ASCORBIC ACID/ERGOCALCIFEROL/FOLIC ACID/RIBOFLAVIN/NICOTINA [Concomitant]
     Route: 048
     Dates: start: 20141020
  8. PAZOPANIB [Concomitant]
     Active Substance: PAZOPANIB
  9. COMPAZINE [Concomitant]
     Active Substance: PROCHLORPERAZINE MALEATE
     Indication: NAUSEA
     Dosage: STRENGTH: 5 MG
     Route: 048
     Dates: start: 20141020
  10. KLONOPIN [Concomitant]
     Active Substance: CLONAZEPAM
     Dates: start: 20141020
  11. ZOLOFT [Concomitant]
     Active Substance: SERTRALINE HYDROCHLORIDE
     Dosage: STRENGTH:50 MG
     Route: 048
     Dates: start: 20141020
  12. ANTINEOPLASTIC AGENTS [Concomitant]
     Active Substance: UNSPECIFIED INGREDIENT
     Dates: start: 201407
  13. ANTINEOPLASTIC AGENTS [Concomitant]
     Active Substance: UNSPECIFIED INGREDIENT
     Dosage: SWOLLOW WITH THE WHOLE GLASS OF WATER
     Route: 048
     Dates: start: 20140702
  14. PAZOPANIB [Concomitant]
     Active Substance: PAZOPANIB
     Route: 048
  15. PAZOPANIB [Concomitant]
     Active Substance: PAZOPANIB
     Dates: start: 20140331
  16. LOMOTIL [Concomitant]
     Active Substance: ATROPINE SULFATE\DIPHENOXYLATE HYDROCHLORIDE
     Indication: DIARRHOEA
     Route: 048
     Dates: start: 20141020
  17. VITAMIN B12 [Concomitant]
     Active Substance: CYANOCOBALAMIN
     Route: 048
     Dates: start: 20141020
  18. ANTINEOPLASTIC AGENTS [Concomitant]
     Active Substance: UNSPECIFIED INGREDIENT
     Route: 048
     Dates: start: 20140801
  19. PAZOPANIB [Concomitant]
     Active Substance: PAZOPANIB
     Route: 048
     Dates: start: 20130601, end: 20140820
  20. IMODIUM [Concomitant]
     Active Substance: LOPERAMIDE HYDROCHLORIDE

REACTIONS (2)
  - Renal pain [Unknown]
  - Headache [Unknown]
